FAERS Safety Report 20737121 (Version 6)
Quarter: 2022Q3

REPORT INFORMATION
  Report Type: Spontaneous
  Country: US (occurrence: US)
  Receive Date: 20220421
  Receipt Date: 20220722
  Transmission Date: 20221026
  Serious: No
  Sender: FDA-Public Use
  Company Number: US-PFIZER INC-202200412626

PATIENT
  Age: 67 Year
  Sex: Female

DRUGS (1)
  1. IBRANCE [Suspect]
     Active Substance: PALBOCICLIB
     Dosage: 125 MG
     Dates: start: 20220301

REACTIONS (9)
  - Product dose omission issue [Unknown]
  - Urticaria [Unknown]
  - Pruritus [Unknown]
  - Fatigue [Unknown]
  - Pain [Unknown]
  - Pain in extremity [Unknown]
  - Myalgia [Unknown]
  - Cough [Unknown]
  - Alopecia [Unknown]

NARRATIVE: CASE EVENT DATE: 20220401
